FAERS Safety Report 26035491 (Version 1)
Quarter: 2025Q4

REPORT INFORMATION
  Report Type: Spontaneous
  Country: US (occurrence: US)
  Receive Date: 20251112
  Receipt Date: 20251112
  Transmission Date: 20260117
  Serious: Yes (Hospitalization, Other)
  Sender: SCIEGEN PHARMACEUTICALS INC
  Company Number: US-SCIEGENP-2025SCLIT00360

PATIENT
  Age: 65 Year
  Sex: Male

DRUGS (99)
  1. ARIPIPRAZOLE [Suspect]
     Active Substance: ARIPIPRAZOLE
     Indication: Antipsychotic therapy
     Dosage: ON DAY 14 OF FIRST ADMISSION
     Route: 065
  2. ARIPIPRAZOLE [Suspect]
     Active Substance: ARIPIPRAZOLE
     Dosage: ON DAY 15 OF FIRST ADMISSION
     Route: 065
  3. ARIPIPRAZOLE [Suspect]
     Active Substance: ARIPIPRAZOLE
     Dosage: ON DAY 16 OF FIRST ADMISSION
     Route: 065
  4. ARIPIPRAZOLE [Suspect]
     Active Substance: ARIPIPRAZOLE
     Dosage: ON DAY 18 OF FIRST ADMISSION
     Route: 065
  5. ARIPIPRAZOLE [Suspect]
     Active Substance: ARIPIPRAZOLE
     Dosage: ON DAY 19 OF FIRST ADMISSION
     Route: 065
  6. ARIPIPRAZOLE [Suspect]
     Active Substance: ARIPIPRAZOLE
     Dosage: ON DAY 20 OF FIRST ADMISSION
     Route: 065
  7. ARIPIPRAZOLE [Suspect]
     Active Substance: ARIPIPRAZOLE
     Dosage: ON DAY 21 OF FIRST ADMISSION
     Route: 065
  8. ARIPIPRAZOLE [Suspect]
     Active Substance: ARIPIPRAZOLE
     Dosage: ON DAY 22 OF FIRST ADMISSION
     Route: 065
  9. ARIPIPRAZOLE [Suspect]
     Active Substance: ARIPIPRAZOLE
     Dosage: ON DAY 23 OF FIRST ADMISSION
     Route: 065
  10. ARIPIPRAZOLE [Suspect]
     Active Substance: ARIPIPRAZOLE
     Dosage: ON DAY 24 OF FIRST ADMISSION
     Route: 065
  11. ARIPIPRAZOLE [Suspect]
     Active Substance: ARIPIPRAZOLE
     Dosage: ON DAY 25 OF FIRST ADMISSION
     Route: 065
  12. ARIPIPRAZOLE [Suspect]
     Active Substance: ARIPIPRAZOLE
     Dosage: ON DAY 26 OF FIRST ADMISSION
     Route: 065
  13. ARIPIPRAZOLE [Suspect]
     Active Substance: ARIPIPRAZOLE
     Dosage: ON DAY 28 OF FIRST ADMISSION
     Route: 065
  14. ARIPIPRAZOLE [Suspect]
     Active Substance: ARIPIPRAZOLE
     Dosage: ON DAY 3 OF SECOND ADMISSION
     Route: 065
  15. ARIPIPRAZOLE [Suspect]
     Active Substance: ARIPIPRAZOLE
     Dosage: ON DAY 6 OF SECOND ADMISSION
     Route: 065
  16. ARIPIPRAZOLE [Suspect]
     Active Substance: ARIPIPRAZOLE
     Dosage: ON DAY 7 OF SECOND ADMISSION
     Route: 065
  17. ARIPIPRAZOLE [Suspect]
     Active Substance: ARIPIPRAZOLE
     Dosage: ON DAY 8 OF SECOND ADMISSION
     Route: 065
  18. ARIPIPRAZOLE [Suspect]
     Active Substance: ARIPIPRAZOLE
     Dosage: ON DAY 9 OF SECOND ADMISSION
     Route: 065
  19. ARIPIPRAZOLE [Suspect]
     Active Substance: ARIPIPRAZOLE
     Dosage: ON DAY 10 OF SECOND ADMISSION
     Route: 065
  20. ARIPIPRAZOLE [Suspect]
     Active Substance: ARIPIPRAZOLE
     Dosage: ON DAY 11 OF SECOND ADMISSION
     Route: 065
  21. FUROSEMIDE [Concomitant]
     Active Substance: FUROSEMIDE
     Indication: Product used for unknown indication
     Dosage: ON DAY 2 OF SECOND ADMISSION
     Route: 065
  22. FUROSEMIDE [Concomitant]
     Active Substance: FUROSEMIDE
     Dosage: ON DAY 3 OF SECOND ADMISSION
     Route: 065
  23. FUROSEMIDE [Concomitant]
     Active Substance: FUROSEMIDE
     Dosage: ON DAY 5 OF SECOND ADMISSION
     Route: 065
  24. FUROSEMIDE [Concomitant]
     Active Substance: FUROSEMIDE
     Dosage: ON DAY 6 OF SECOND ADMISSION
     Route: 065
  25. FUROSEMIDE [Concomitant]
     Active Substance: FUROSEMIDE
     Dosage: ON DAY 7 OF SECOND ADMISSION
     Route: 065
  26. FUROSEMIDE [Concomitant]
     Active Substance: FUROSEMIDE
     Dosage: ON DAY 8 OF SECOND ADMISSION
     Route: 065
  27. FUROSEMIDE [Concomitant]
     Active Substance: FUROSEMIDE
     Dosage: ON DAY 9 OF SECOND ADMISSION
     Route: 065
  28. FUROSEMIDE [Concomitant]
     Active Substance: FUROSEMIDE
     Dosage: ON DAY 10 OF SECOND ADMISSION
     Route: 065
  29. FUROSEMIDE [Concomitant]
     Active Substance: FUROSEMIDE
     Dosage: ON DAY 12 OF SECOND ADMISSION
     Route: 065
  30. FUROSEMIDE [Concomitant]
     Active Substance: FUROSEMIDE
     Dosage: ON DAY 13 OF SECOND ADMISSION
     Route: 065
  31. FUROSEMIDE [Concomitant]
     Active Substance: FUROSEMIDE
     Dosage: ON DAY 14 OF SECOND ADMISSION
     Route: 065
  32. FUROSEMIDE [Concomitant]
     Active Substance: FUROSEMIDE
     Dosage: ON DAY 15 OF SECOND ADMISSION
     Route: 065
  33. FUROSEMIDE [Concomitant]
     Active Substance: FUROSEMIDE
     Dosage: ON DAY 16 OF SECOND ADMISSION
     Route: 065
  34. FUROSEMIDE [Concomitant]
     Active Substance: FUROSEMIDE
     Dosage: ON DAY 17 OF SECOND ADMISSION
     Route: 065
  35. FUROSEMIDE [Concomitant]
     Active Substance: FUROSEMIDE
     Dosage: ON DAY 18 OF SECOND ADMISSION
     Route: 065
  36. FUROSEMIDE [Concomitant]
     Active Substance: FUROSEMIDE
     Dosage: ON DAY 19 OF SECOND ADMISSION
     Route: 065
  37. FUROSEMIDE [Concomitant]
     Active Substance: FUROSEMIDE
     Dosage: ON DAY 20 OF SECOND ADMISSION
     Route: 065
  38. FUROSEMIDE [Concomitant]
     Active Substance: FUROSEMIDE
     Dosage: ON DAY 21 OF SECOND ADMISSION
     Route: 065
  39. FUROSEMIDE [Concomitant]
     Active Substance: FUROSEMIDE
     Dosage: ON DAY 22 OF SECOND ADMISSION
     Route: 065
  40. FUROSEMIDE [Concomitant]
     Active Substance: FUROSEMIDE
     Dosage: ON DAY 23 OF SECOND ADMISSION
     Route: 065
  41. FUROSEMIDE [Concomitant]
     Active Substance: FUROSEMIDE
     Dosage: ON DAY 24 OF SECOND ADMISSION
     Route: 065
  42. FUROSEMIDE [Concomitant]
     Active Substance: FUROSEMIDE
     Dosage: FROM DAY 2 TO DAY 10 OF OF FIRST ADMISSION
     Route: 065
  43. FUROSEMIDE [Concomitant]
     Active Substance: FUROSEMIDE
     Dosage: FROM DAY 11 OF OF FIRST ADMISSION
     Route: 065
  44. FUROSEMIDE [Concomitant]
     Active Substance: FUROSEMIDE
     Dosage: FROM DAY 12 TO 21 OF FIRST ADMISSION
     Route: 065
  45. RISPERIDONE [Concomitant]
     Active Substance: RISPERIDONE
     Indication: Psychotic disorder
     Dosage: ON DAY 2 OF FIRST ADMISSION
     Route: 065
  46. RISPERIDONE [Concomitant]
     Active Substance: RISPERIDONE
     Dosage: ON DAY 3 OF FIRST ADMISSION
     Route: 065
  47. RISPERIDONE [Concomitant]
     Active Substance: RISPERIDONE
     Dosage: ON DAY 4 OF FIRST ADMISSION
     Route: 065
  48. RISPERIDONE [Concomitant]
     Active Substance: RISPERIDONE
     Dosage: ON DAY 5 OF FIRST ADMISSION
     Route: 065
  49. RISPERIDONE [Concomitant]
     Active Substance: RISPERIDONE
     Dosage: ON DAY 6 OF FIRST ADMISSION
     Route: 065
  50. RISPERIDONE [Concomitant]
     Active Substance: RISPERIDONE
     Dosage: ON DAY 7 OF FIRST ADMISSION
     Route: 065
  51. RISPERIDONE [Concomitant]
     Active Substance: RISPERIDONE
     Dosage: ON DAY 8 OF FIRST ADMISSION
     Route: 065
  52. RISPERIDONE [Concomitant]
     Active Substance: RISPERIDONE
     Dosage: ON DAY 9 OF FIRST ADMISSION
     Route: 065
  53. RISPERIDONE [Concomitant]
     Active Substance: RISPERIDONE
     Dosage: ON DAY 10 OF FIRST ADMISSION
     Route: 065
  54. RISPERIDONE [Concomitant]
     Active Substance: RISPERIDONE
     Dosage: ON DAY 11 OF FIRST ADMISSION
     Route: 065
  55. RISPERIDONE [Concomitant]
     Active Substance: RISPERIDONE
     Dosage: ON DAY 12 OF FIRST ADMISSION
     Route: 065
  56. RISPERIDONE [Concomitant]
     Active Substance: RISPERIDONE
     Dosage: ON DAY 13 OF FIRST ADMISSION
     Route: 065
  57. RISPERIDONE [Concomitant]
     Active Substance: RISPERIDONE
     Dosage: ON DAY 14 OF FIRST ADMISSION
     Route: 065
  58. RISPERIDONE [Concomitant]
     Active Substance: RISPERIDONE
     Dosage: ON DAY 15 OF FIRST ADMISSION
     Route: 065
  59. RISPERIDONE [Concomitant]
     Active Substance: RISPERIDONE
     Dosage: ON DAY 16 OF FIRST ADMISSION
     Route: 065
  60. RISPERIDONE [Concomitant]
     Active Substance: RISPERIDONE
     Dosage: ON DAY 29 OF FIRST ADMISSION
     Route: 065
  61. RISPERIDONE [Concomitant]
     Active Substance: RISPERIDONE
     Dosage: ON DAY 31 OF FIRST ADMISSION
     Route: 065
  62. RISPERIDONE [Concomitant]
     Active Substance: RISPERIDONE
     Dosage: ON DAY 32 OF FIRST ADMISSION
     Route: 065
  63. RISPERIDONE [Concomitant]
     Active Substance: RISPERIDONE
     Dosage: ON DAY 33 OF FIRST ADMISSION
     Route: 065
  64. RISPERIDONE [Concomitant]
     Active Substance: RISPERIDONE
     Dosage: ON DAY 34 OF FIRST ADMISSION
     Route: 065
  65. RISPERIDONE [Concomitant]
     Active Substance: RISPERIDONE
     Dosage: ON DAY 35 OF FIRST ADMISSION
     Route: 065
  66. RISPERIDONE [Concomitant]
     Active Substance: RISPERIDONE
     Dosage: ON DAY 36 OF FIRST ADMISSION
     Route: 065
  67. RISPERIDONE [Concomitant]
     Active Substance: RISPERIDONE
     Dosage: ON DAY 37 OF FIRST ADMISSION
     Route: 065
  68. RISPERIDONE [Concomitant]
     Active Substance: RISPERIDONE
     Dosage: ON DAY 38 OF FIRST ADMISSION
     Route: 065
  69. RISPERIDONE [Concomitant]
     Active Substance: RISPERIDONE
     Dosage: ON DAY 12 OF SECOND ADMISSION
     Route: 065
  70. RISPERIDONE [Concomitant]
     Active Substance: RISPERIDONE
     Dosage: ON DAY 13 OF SECOND ADMISSION
     Route: 065
  71. RISPERIDONE [Concomitant]
     Active Substance: RISPERIDONE
     Dosage: ON DAY 14 OF SECOND ADMISSION
     Route: 065
  72. RISPERIDONE [Concomitant]
     Active Substance: RISPERIDONE
     Dosage: ON DAY 15 OF SECOND ADMISSION
     Route: 065
  73. RISPERIDONE [Concomitant]
     Active Substance: RISPERIDONE
     Dosage: ON DAY 16 OF SECOND ADMISSION
     Route: 065
  74. RISPERIDONE [Concomitant]
     Active Substance: RISPERIDONE
     Dosage: ON DAY 17 OF SECOND ADMISSION
     Route: 065
  75. RISPERIDONE [Concomitant]
     Active Substance: RISPERIDONE
     Dosage: ON DAY 18 OF SECOND ADMISSION
     Route: 065
  76. RISPERIDONE [Concomitant]
     Active Substance: RISPERIDONE
     Dosage: ON DAY 19 OF SECOND ADMISSION
     Route: 065
  77. RISPERIDONE [Concomitant]
     Active Substance: RISPERIDONE
     Dosage: ON DAY 20 OF SECOND ADMISSION
     Route: 065
  78. RISPERIDONE [Concomitant]
     Active Substance: RISPERIDONE
     Dosage: ON DAY 21 OF SECOND ADMISSION
     Route: 065
  79. RISPERIDONE [Concomitant]
     Active Substance: RISPERIDONE
     Dosage: ON DAY 22 OF SECOND ADMISSION
     Route: 065
  80. RISPERIDONE [Concomitant]
     Active Substance: RISPERIDONE
     Dosage: ON DAY 23 OF SECOND ADMISSION
     Route: 065
  81. RISPERIDONE [Concomitant]
     Active Substance: RISPERIDONE
     Dosage: ON DAY 24 OF SECOND ADMISSION
     Route: 065
  82. SPIRONOLACTONE [Concomitant]
     Active Substance: SPIRONOLACTONE
     Indication: Heart failure with reduced ejection fraction
     Dosage: FROM DAY 9 TO 59 OF FIRST ADMISSION
     Route: 065
  83. BUMETANIDE [Concomitant]
     Active Substance: BUMETANIDE
     Indication: Product used for unknown indication
     Dosage: ON DAY 21 AND 22 OF FIRST ADMISSION
     Route: 065
  84. BUMETANIDE [Concomitant]
     Active Substance: BUMETANIDE
     Dosage: ON DAY 23 AND 24 OF FIRST ADMISSION
     Route: 065
  85. BUMETANIDE [Concomitant]
     Active Substance: BUMETANIDE
     Dosage: FROM DAY 25 TO 27 OF FIRST ADMISSION
     Route: 065
  86. BUMETANIDE [Concomitant]
     Active Substance: BUMETANIDE
     Dosage: ON DAY 28 OF FIRST ADMISSION
     Route: 065
  87. BUMETANIDE [Concomitant]
     Active Substance: BUMETANIDE
     Dosage: FROM DAY 29 TO 41 OF FIRST ADMISSION
     Route: 065
  88. BUMETANIDE [Concomitant]
     Active Substance: BUMETANIDE
     Dosage: FROM DAY 45 TO 47 OF FIRST ADMISSION
     Route: 065
  89. LOXAPINE [Concomitant]
     Active Substance: LOXAPINE
     Indication: Antipsychotic therapy
     Dosage: ON DAY 37 OF FIRST ADMISSION
     Route: 065
  90. LOXAPINE [Concomitant]
     Active Substance: LOXAPINE
     Dosage: ON DAY 38 OF FIRST ADMISSION
     Route: 065
  91. LOXAPINE [Concomitant]
     Active Substance: LOXAPINE
     Dosage: FROM DAY 39 TO 51 OF FIRST ADMISSION
     Route: 065
  92. LOXAPINE [Concomitant]
     Active Substance: LOXAPINE
     Dosage: FROM DAY 51 TO 57 OF FIRST ADMISSION
     Route: 065
  93. LOXAPINE [Concomitant]
     Active Substance: LOXAPINE
     Dosage: ON DAY 58 AND 59 OF FIRST ADMISSION
     Route: 065
  94. LOXAPINE [Concomitant]
     Active Substance: LOXAPINE
     Dosage: ON DAY 67 OF FIRST ADMISSION
     Route: 065
  95. TRAZODONE [Concomitant]
     Active Substance: TRAZODONE HYDROCHLORIDE
     Indication: Antipsychotic therapy
     Dosage: ON DAY 22 OF FIRST ADMISSION
     Route: 065
  96. TRAZODONE [Concomitant]
     Active Substance: TRAZODONE HYDROCHLORIDE
     Dosage: ON DAY 23 OF FIRST ADMISSION
     Route: 065
  97. TRAZODONE [Concomitant]
     Active Substance: TRAZODONE HYDROCHLORIDE
     Dosage: FROM DAY 24 TO 26 OF FIRST ADMISSION
     Route: 065
  98. TRAZODONE [Concomitant]
     Active Substance: TRAZODONE HYDROCHLORIDE
     Dosage: FROM DAY 11 TO 17 OF SECOND ADMISSION
     Route: 065
  99. TRAZODONE [Concomitant]
     Active Substance: TRAZODONE HYDROCHLORIDE
     Dosage: FROM DAY 18 TO 24 OF SECOND ADMISSION
     Route: 065

REACTIONS (2)
  - Inappropriate antidiuretic hormone secretion [Recovered/Resolved]
  - Hyponatraemia [Recovered/Resolved]
